FAERS Safety Report 12727333 (Version 1)
Quarter: 2016Q3

REPORT INFORMATION
  Report Type: Spontaneous
  Country: GB (occurrence: GB)
  Receive Date: 20160909
  Receipt Date: 20160909
  Transmission Date: 20161109
  Serious: Yes (Hospitalization)
  Sender: FDA-Public Use
  Company Number: GB-TEVA-689243ACC

PATIENT
  Age: 99 Year
  Sex: Male

DRUGS (6)
  1. SPIROLACTONE [Suspect]
     Active Substance: SPIRONOLACTONE
     Route: 048
  2. LANSOPRAZOLE. [Concomitant]
     Active Substance: LANSOPRAZOLE
  3. DIGOXIN. [Concomitant]
     Active Substance: DIGOXIN
  4. LACTULOSE. [Concomitant]
     Active Substance: LACTULOSE
  5. WARFARIN [Concomitant]
     Active Substance: WARFARIN
  6. BUMETANIDE. [Suspect]
     Active Substance: BUMETANIDE
     Route: 048

REACTIONS (2)
  - Fall [Recovering/Resolving]
  - Dehydration [Recovering/Resolving]
